FAERS Safety Report 24668845 (Version 1)
Quarter: 2024Q4

REPORT INFORMATION
  Report Type: Spontaneous
  Country: US (occurrence: US)
  Receive Date: 20241127
  Receipt Date: 20241127
  Transmission Date: 20250114
  Serious: Yes (Other)
  Sender: LUPIN
  Company Number: US-LUPIN PHARMACEUTICALS INC.-2024-11433

PATIENT
  Age: 73 Year
  Sex: Male

DRUGS (2)
  1. TENOFOVIR ALAFENAMIDE [Interacting]
     Active Substance: TENOFOVIR ALAFENAMIDE
     Indication: Antiretroviral therapy
     Dosage: UNK
     Route: 065
  2. DIDANOSINE [Interacting]
     Active Substance: DIDANOSINE
     Indication: Antiretroviral therapy
     Dosage: UNK, FOR 164.3?MONTHS
     Route: 065

REACTIONS (3)
  - Toxicity to various agents [Unknown]
  - Retinal toxicity [Unknown]
  - Drug interaction [Unknown]
